FAERS Safety Report 16400500 (Version 4)
Quarter: 2019Q2

REPORT INFORMATION
  Report Type: Spontaneous
  Country: US (occurrence: US)
  Receive Date: 20190606
  Receipt Date: 20190617
  Transmission Date: 20190711
  Serious: Yes (Other)
  Sender: FDA-Public Use
  Company Number: US-SUNOVION-2019SUN002304

PATIENT
  Age: 36 Year
  Sex: Male
  Weight: 95.24 kg

DRUGS (2)
  1. LATUDA [Suspect]
     Active Substance: LURASIDONE HYDROCHLORIDE
     Indication: SCHIZOPHRENIA
     Dosage: 80 MG, QD PM
     Route: 048
     Dates: start: 20170307
  2. HYDROXYZINE [Concomitant]
     Active Substance: HYDROXYZINE HYDROCHLORIDE
     Indication: ANXIETY
     Dosage: UNK
     Route: 065
     Dates: start: 20180621

REACTIONS (7)
  - Schizophrenia [Not Recovered/Not Resolved]
  - Grimacing [Unknown]
  - Dyskinesia [Not Recovered/Not Resolved]
  - Trismus [Unknown]
  - Facial spasm [Unknown]
  - Tardive dyskinesia [Not Recovered/Not Resolved]
  - Excessive eye blinking [Unknown]

NARRATIVE: CASE EVENT DATE: 20190515
